FAERS Safety Report 9834060 (Version 1)
Quarter: 2014Q1

REPORT INFORMATION
  Report Type: Report from Study
  Country: US (occurrence: US)
  Receive Date: 20140122
  Receipt Date: 20140122
  Transmission Date: 20141002
  Serious: Yes (Hospitalization)
  Sender: FDA-Public Use
  Company Number: US-ROCHE-1332405

PATIENT
  Age: 26 Year
  Sex: Female
  Weight: 51.9 kg

DRUGS (10)
  1. RITUXIMAB [Suspect]
     Indication: GRAFT VERSUS HOST DISEASE
     Route: 042
     Dates: start: 20131010, end: 20131030
  2. RITUXIMAB [Suspect]
     Indication: SCLERODERMA
  3. DECADRON [Concomitant]
     Route: 048
     Dates: start: 201312
  4. LOESTRIN FE [Concomitant]
     Dosage: LONGSTANDING MEDICATION
     Route: 065
  5. PREDNISONE [Concomitant]
     Route: 065
     Dates: start: 201201
  6. POSACONAZOLE [Concomitant]
     Route: 065
     Dates: start: 201306
  7. VICODIN [Concomitant]
     Route: 065
     Dates: start: 201307
  8. ACYCLOVIR [Concomitant]
     Dosage: LONGSTANDING MEDICATION
     Route: 065
  9. BACTRIM [Concomitant]
     Dosage: LONGSTANDING MEDICATION
     Route: 065
  10. FOSAMAX [Concomitant]
     Dosage: LONGSTANDING MEDICATION
     Route: 065

REACTIONS (4)
  - Productive cough [Recovering/Resolving]
  - Febrile neutropenia [Recovered/Resolved]
  - Chills [Unknown]
  - Wheezing [Unknown]
